FAERS Safety Report 25468930 (Version 1)
Quarter: 2025Q2

REPORT INFORMATION
  Report Type: Spontaneous
  Country: US (occurrence: US)
  Receive Date: 20250623
  Receipt Date: 20250623
  Transmission Date: 20250717
  Serious: Yes (Hospitalization, Other)
  Sender: SANOFI AVENTIS
  Company Number: US-SA-2025SA176495

PATIENT
  Age: 62 Year
  Sex: Female

DRUGS (2)
  1. DUPIXENT [Suspect]
     Active Substance: DUPILUMAB
     Indication: Eczema
     Dosage: 300 MG, QOW
     Route: 058
     Dates: start: 2024
  2. DUPIXENT [Suspect]
     Active Substance: DUPILUMAB
     Dosage: 300 MG, QOW
     Route: 058

REACTIONS (6)
  - Fall [Unknown]
  - Loss of consciousness [Unknown]
  - Spinal operation [Unknown]
  - Rebound eczema [Unknown]
  - Dry skin [Unknown]
  - Skin exfoliation [Unknown]

NARRATIVE: CASE EVENT DATE: 20241001
